FAERS Safety Report 25235059 (Version 1)
Quarter: 2025Q2

REPORT INFORMATION
  Report Type: Spontaneous
  Country: FR (occurrence: FR)
  Receive Date: 20250424
  Receipt Date: 20250424
  Transmission Date: 20250717
  Serious: Yes (Other)
  Sender: MYLAN
  Company Number: FR-ROCHE-10000248856

PATIENT
  Age: 82 Year
  Sex: Female

DRUGS (12)
  1. GEMCITABINE [Suspect]
     Active Substance: GEMCITABINE
     Indication: Diffuse large B-cell lymphoma refractory
  2. GEMCITABINE [Suspect]
     Active Substance: GEMCITABINE
     Route: 065
  3. GEMCITABINE [Suspect]
     Active Substance: GEMCITABINE
     Route: 065
  4. GEMCITABINE [Suspect]
     Active Substance: GEMCITABINE
  5. OXALIPLATIN [Suspect]
     Active Substance: OXALIPLATIN
     Indication: Diffuse large B-cell lymphoma refractory
  6. OXALIPLATIN [Suspect]
     Active Substance: OXALIPLATIN
     Route: 065
  7. OXALIPLATIN [Suspect]
     Active Substance: OXALIPLATIN
     Route: 065
  8. OXALIPLATIN [Suspect]
     Active Substance: OXALIPLATIN
  9. RITUXIMAB [Suspect]
     Active Substance: RITUXIMAB
     Indication: Diffuse large B-cell lymphoma refractory
  10. RITUXIMAB [Suspect]
     Active Substance: RITUXIMAB
     Route: 065
  11. RITUXIMAB [Suspect]
     Active Substance: RITUXIMAB
     Route: 065
  12. RITUXIMAB [Suspect]
     Active Substance: RITUXIMAB

REACTIONS (2)
  - Diffuse large B-cell lymphoma recurrent [Unknown]
  - Off label use [Unknown]
